FAERS Safety Report 15160358 (Version 1)
Quarter: 2018Q3

REPORT INFORMATION
  Report Type: Spontaneous
  Country: DE (occurrence: DE)
  Receive Date: 20180718
  Receipt Date: 20180718
  Transmission Date: 20181010
  Serious: Yes (Hospitalization, Disabling)
  Sender: FDA-Public Use
  Company Number: PHHY2018DE049257

PATIENT
  Sex: Male
  Weight: 75 kg

DRUGS (2)
  1. BUDESONIDE. [Suspect]
     Active Substance: BUDESONIDE
     Indication: RHINITIS ALLERGIC
     Dosage: 64 UG, UNK (2?4X/D)
     Route: 045
  2. CETIRIZIN [Concomitant]
     Active Substance: CETIRIZINE HYDROCHLORIDE
     Indication: RHINITIS ALLERGIC
     Dosage: 5 MG, UNK (2?3 X / W)
     Route: 048

REACTIONS (2)
  - Retinal detachment [Unknown]
  - Retinal degeneration [Unknown]

NARRATIVE: CASE EVENT DATE: 201711
